FAERS Safety Report 18098136 (Version 1)
Quarter: 2020Q3

REPORT INFORMATION
  Report Type: Spontaneous
  Country: US (occurrence: US)
  Receive Date: 20200731
  Receipt Date: 20200731
  Transmission Date: 20201103
  Serious: No
  Sender: FDA-Public Use
  Company Number: US-GLENMARK PHARMACEUTICALS-2020GMK046038

PATIENT

DRUGS (2)
  1. TRIAMCINOLONE ACETONIDE OINTMENT USP [Suspect]
     Active Substance: TRIAMCINOLONE ACETONIDE
     Indication: RASH
     Dosage: UNK, HS (ONCE A DAY BEFORE BEDTIME)
     Route: 061
     Dates: start: 201903, end: 2019
  2. TRIAMCINOLONE ACETONIDE OINTMENT USP [Suspect]
     Active Substance: TRIAMCINOLONE ACETONIDE
     Indication: PSORIASIS
     Dosage: UNK, HS (ONCE A DAY BEFORE BEDTIME)
     Route: 061
     Dates: start: 202001, end: 202001

REACTIONS (2)
  - Product use in unapproved indication [Unknown]
  - Skin striae [Not Recovered/Not Resolved]

NARRATIVE: CASE EVENT DATE: 201903
